FAERS Safety Report 9308434 (Version 1)
Quarter: 2013Q2

REPORT INFORMATION
  Report Type: Spontaneous
  Country: US (occurrence: US)
  Receive Date: 20130524
  Receipt Date: 20130524
  Transmission Date: 20140414
  Serious: Yes (Other)
  Sender: FDA-Public Use
  Company Number: US-BRISTOL-MYERS SQUIBB COMPANY-17447913

PATIENT
  Age: 54 Year
  Sex: Female

DRUGS (2)
  1. PRAVACHOL [Suspect]
     Dates: end: 2012
  2. REBIF [Suspect]
     Route: 058
     Dates: end: 201210

REACTIONS (1)
  - Autoimmune hepatitis [Unknown]
